FAERS Safety Report 18988303 (Version 1)
Quarter: 2021Q1

REPORT INFORMATION
  Report Type: Report from Study
  Country: DE (occurrence: DE)
  Receive Date: 20210309
  Receipt Date: 20210309
  Transmission Date: 20210420
  Serious: Yes (Other)
  Sender: FDA-Public Use
  Company Number: DE-PFIZER INC-2021220545

PATIENT
  Age: 85 Year
  Sex: Female

DRUGS (7)
  1. RITUXIMAB. [Suspect]
     Active Substance: RITUXIMAB
     Indication: RHEUMATOID ARTHRITIS
     Dosage: 1000 MG, SUBSEQUENT DOSES OF RITUXIMAB (NON ROCHE) WAS RECEIVED ON SEP/2020
     Route: 065
     Dates: start: 202009
  2. NO SUBJECT DRUG [Suspect]
     Active Substance: UNSPECIFIED INGREDIENT
     Dosage: UNK
  3. METHOTREXATE SODIUM. [Suspect]
     Active Substance: METHOTREXATE SODIUM
     Dosage: 7.5 MG
     Route: 065
  4. RITUXIMAB. [Suspect]
     Active Substance: RITUXIMAB
     Dosage: 1000 MG, SUBSEQUENT DOSES OF RITUXIMAB (NON ROCHE) WAS RECEIVED ON /OCT/2018, /JUN/2019, /JAN/2020
     Route: 065
     Dates: start: 201804
  5. RITUXIMAB. [Suspect]
     Active Substance: RITUXIMAB
     Indication: RHEUMATOID ARTHRITIS
     Dosage: 1000 MG, SUBSEQUENT DOSES WAS RECEIVED ON /AUG/2016, /FEB/2017 AND /AUG/2017
     Route: 065
     Dates: start: 201602
  6. METHOTREXATE SODIUM. [Suspect]
     Active Substance: METHOTREXATE SODIUM
     Indication: RHEUMATOID ARTHRITIS
     Dosage: 10 MG
     Route: 065
  7. METHOTREXATE SODIUM. [Suspect]
     Active Substance: METHOTREXATE SODIUM
     Dosage: 5 MG
     Route: 065

REACTIONS (1)
  - Bowen^s disease [Unknown]

NARRATIVE: CASE EVENT DATE: 201910
